FAERS Safety Report 6368525-X (Version None)
Quarter: 2009Q3

REPORT INFORMATION
  Report Type: 
  Country: None (occurrence: None)
  Receive Date: 20090922
  Receipt Date: 20090915
  Transmission Date: 20100115
  Serious: Yes (Hospitalization)
  Sender: FDA-Public Use
  Company Number: B0594437A

PATIENT
  Sex: Female

DRUGS (2)
  1. AUGMENTIN '125' [Suspect]
     Indication: TOOTH ABSCESS
     Route: 048
     Dates: start: 20090906, end: 20090906
  2. BENTELAN [Concomitant]

REACTIONS (3)
  - ASTHENIA [None]
  - PRURITUS GENERALISED [None]
  - TREMOR [None]
